FAERS Safety Report 8031248-5 (Version None)
Quarter: 2012Q1

REPORT INFORMATION
  Report Type: 
  Country: None (occurrence: None)
  Receive Date: 20120109
  Receipt Date: 20111228
  Transmission Date: 20120608
  Serious: Yes (Hospitalization)
  Sender: FDA-Public Use
  Company Number: JP-MERCK-1110USA04065

PATIENT
  Age: 62 Year
  Sex: Female
  Weight: 50 kg

DRUGS (6)
  1. COZAAR [Suspect]
     Indication: HYPERTENSION
     Route: 048
     Dates: start: 20111014, end: 20111024
  2. REZALTAS [Concomitant]
     Route: 048
  3. ZOLPIDEM [Concomitant]
     Indication: INSOMNIA
     Route: 048
     Dates: start: 20111014
  4. PURSENNID (SENNOSIDES) [Concomitant]
     Indication: CONSTIPATION
     Route: 048
     Dates: start: 20111014
  5. CONIEL [Suspect]
     Indication: HYPERTENSION
     Route: 048
     Dates: start: 20111014, end: 20111024
  6. NESPO [Concomitant]
     Indication: NEPHROGENIC ANAEMIA
     Route: 042
     Dates: start: 20111017

REACTIONS (1)
  - PANCYTOPENIA [None]
